FAERS Safety Report 22337840 (Version 1)
Quarter: 2023Q2

REPORT INFORMATION
  Report Type: Spontaneous
  Country: US (occurrence: None)
  Receive Date: 20230517
  Receipt Date: 20230517
  Transmission Date: 20230722
  Serious: No
  Sender: FDA-Public Use
  Company Number: None

PATIENT
  Age: 70 Year
  Sex: Female

DRUGS (1)
  1. ATORVASTATIN [Suspect]
     Active Substance: ATORVASTATIN
     Dates: start: 20230413, end: 20230515

REACTIONS (4)
  - Diarrhoea [None]
  - Abdominal pain upper [None]
  - Visual impairment [None]
  - Headache [None]

NARRATIVE: CASE EVENT DATE: 20230515
